FAERS Safety Report 7016136-5 (Version None)
Quarter: 2010Q3

REPORT INFORMATION
  Report Type: 
  Country: None (occurrence: None)
  Receive Date: 20100927
  Receipt Date: 20100813
  Transmission Date: 20110219
  Serious: Yes (Death, Other)
  Sender: FDA-Public Use
  Company Number: US-BAXTER-2008BH006794

PATIENT
  Age: 76 Year
  Sex: Male
  Weight: 97 kg

DRUGS (40)
  1. HEPARIN SODIUM INJECTION [Suspect]
     Indication: CORONARY ARTERY BYPASS
     Route: 042
     Dates: start: 20080123, end: 20080123
  2. HEPARIN SODIUM INJECTION [Suspect]
     Indication: ANTICOAGULANT THERAPY
     Route: 042
     Dates: start: 20080123, end: 20080123
  3. HEPARIN SODIUM INJECTION [Suspect]
     Indication: PROPHYLAXIS
     Route: 042
     Dates: start: 20080123, end: 20080123
  4. HEPARIN SODIUM INJECTION [Suspect]
     Indication: CATHETERISATION CARDIAC
     Route: 042
     Dates: start: 20080123, end: 20080123
  5. HEPARIN SODIUM INJECTION [Suspect]
     Indication: VENTRICULAR ASSIST DEVICE INSERTION
     Route: 042
     Dates: start: 20080123, end: 20080123
  6. HEPARIN SODIUM INJECTION [Suspect]
     Route: 042
     Dates: start: 20080123, end: 20080123
  7. HEPARIN SODIUM INJECTION [Suspect]
     Route: 042
     Dates: start: 20080123, end: 20080123
  8. HEPARIN SODIUM INJECTION [Suspect]
     Route: 042
     Dates: start: 20080123, end: 20080123
  9. HEPARIN SODIUM INJECTION [Suspect]
     Route: 042
     Dates: start: 20080123, end: 20080123
  10. HEPARIN SODIUM INJECTION [Suspect]
     Route: 042
     Dates: start: 20080123, end: 20080123
  11. HEPARIN SODIUM INJECTION [Suspect]
     Route: 013
     Dates: start: 20071126, end: 20071126
  12. HEPARIN SODIUM INJECTION [Suspect]
     Route: 013
     Dates: start: 20071126, end: 20071126
  13. HEPARIN SODIUM INJECTION [Suspect]
     Route: 013
     Dates: start: 20071126, end: 20071126
  14. HEPARIN SODIUM INJECTION [Suspect]
     Route: 013
     Dates: start: 20071126, end: 20071126
  15. HEPARIN SODIUM INJECTION [Suspect]
     Route: 013
     Dates: start: 20071126, end: 20071126
  16. HEPARIN SODIUM INJECTION [Suspect]
     Route: 042
     Dates: start: 20080123, end: 20080123
  17. HEPARIN SODIUM INJECTION [Suspect]
     Route: 042
     Dates: start: 20080123, end: 20080123
  18. HEPARIN SODIUM INJECTION [Suspect]
     Route: 042
     Dates: start: 20080123, end: 20080123
  19. HEPARIN SODIUM INJECTION [Suspect]
     Route: 042
     Dates: start: 20080123, end: 20080123
  20. HEPARIN SODIUM INJECTION [Suspect]
     Route: 042
     Dates: start: 20080123, end: 20080123
  21. HEPARIN SODIUM INJECTION [Suspect]
     Route: 042
     Dates: start: 20080124, end: 20080124
  22. HEPARIN SODIUM INJECTION [Suspect]
     Route: 042
     Dates: start: 20080124, end: 20080124
  23. HEPARIN SODIUM INJECTION [Suspect]
     Route: 042
     Dates: start: 20080124, end: 20080124
  24. HEPARIN SODIUM INJECTION [Suspect]
     Route: 042
     Dates: start: 20080124, end: 20080124
  25. HEPARIN SODIUM INJECTION [Suspect]
     Route: 042
     Dates: start: 20080124, end: 20080124
  26. HEPARIN SODIUM 5,000 UNITS IN DEXTROSE 5% [Suspect]
     Indication: ANTICOAGULANT THERAPY
     Route: 042
     Dates: start: 20080124, end: 20080124
  27. HEPARIN SODIUM 5,000 UNITS IN DEXTROSE 5% [Suspect]
     Route: 042
     Dates: start: 20080124, end: 20080124
  28. LISINOPRIL [Concomitant]
     Indication: BLOOD CHOLESTEROL
     Route: 065
  29. EZETIMIBE [Concomitant]
     Indication: BLOOD CHOLESTEROL
     Route: 065
  30. METOPROLOL SUCCINATE [Concomitant]
     Indication: PRODUCT USED FOR UNKNOWN INDICATION
     Route: 065
  31. RANOLAZINE [Concomitant]
     Indication: PRODUCT USED FOR UNKNOWN INDICATION
     Route: 065
  32. ASPIRIN [Concomitant]
     Indication: PRODUCT USED FOR UNKNOWN INDICATION
     Route: 065
  33. VITAMIN B COMPLEX CAP [Concomitant]
     Indication: PRODUCT USED FOR UNKNOWN INDICATION
     Route: 065
  34. FOLIC ACID [Concomitant]
     Indication: PRODUCT USED FOR UNKNOWN INDICATION
     Route: 065
  35. VITAMIN A [Concomitant]
     Indication: PRODUCT USED FOR UNKNOWN INDICATION
     Route: 065
  36. ZINC GLUCONATE [Concomitant]
     Indication: PRODUCT USED FOR UNKNOWN INDICATION
     Route: 065
  37. ASCORBIC ACID [Concomitant]
     Indication: PRODUCT USED FOR UNKNOWN INDICATION
     Route: 065
  38. COENZYME Q10 [Concomitant]
     Indication: PRODUCT USED FOR UNKNOWN INDICATION
     Route: 065
  39. LOVAZA [Concomitant]
     Indication: PRODUCT USED FOR UNKNOWN INDICATION
     Route: 065
  40. SIMVASTATIN [Concomitant]
     Indication: BLOOD CHOLESTEROL
     Route: 065

REACTIONS (17)
  - ARRHYTHMIA [None]
  - AUTOIMMUNE THYROIDITIS [None]
  - CARDIAC ARREST [None]
  - CARDIAC FAILURE [None]
  - CARDIOGENIC SHOCK [None]
  - COAGULOPATHY [None]
  - CORONARY ARTERY DISEASE [None]
  - ELECTROMECHANICAL DISSOCIATION [None]
  - EMBOLISM ARTERIAL [None]
  - ENTEROCOCCAL INFECTION [None]
  - HYPOTENSION [None]
  - LOSS OF CONSCIOUSNESS [None]
  - ORGAN FAILURE [None]
  - OXYGEN SATURATION ABNORMAL [None]
  - PLEURAL EFFUSION [None]
  - SEPSIS [None]
  - SERRATIA INFECTION [None]
